FAERS Safety Report 17740720 (Version 2)
Quarter: 2020Q3

REPORT INFORMATION
  Report Type: Spontaneous
  Country: US (occurrence: US)
  Receive Date: 20200504
  Receipt Date: 20200728
  Transmission Date: 20201102
  Serious: Yes (Other)
  Sender: FDA-Public Use
  Company Number: US-GLAXOSMITHKLINE-US2020072382

PATIENT

DRUGS (2)
  1. FLONASE ALLERGY RELIEF [Suspect]
     Active Substance: FLUTICASONE PROPIONATE
     Indication: PRODUCT USED FOR UNKNOWN INDICATION
     Dosage: UNK
  2. AFRIN [Suspect]
     Active Substance: OXYMETAZOLINE
     Indication: PRODUCT USED FOR UNKNOWN INDICATION
     Dosage: 8 TO 10 TIMES A DAY, QD

REACTIONS (6)
  - Vomiting [Unknown]
  - Inappropriate schedule of product administration [Unknown]
  - Epistaxis [Unknown]
  - Drug dependence [Unknown]
  - Retching [Unknown]
  - Overdose [Unknown]
